FAERS Safety Report 13496931 (Version 13)
Quarter: 2021Q4

REPORT INFORMATION
  Report Type: Report from Study
  Country: None (occurrence: NL)
  Receive Date: 20170428
  Receipt Date: 20211005
  Transmission Date: 20220303
  Serious: Yes (Hospitalization)
  Sender: FDA-Public Use
  Company Number: NL-ABBVIE-17K-114-1956897-00

PATIENT
  Age: 81 Year
  Sex: Female
  Weight: 61 kg

DRUGS (2)
  1. CARBIDOPA\LEVODOPA [Suspect]
     Active Substance: CARBIDOPA\LEVODOPA
     Indication: Parkinson^s disease
     Dosage: MD: 13.0 CD: 2.2 ED: 3.2
     Route: 050
     Dates: start: 20150407
  2. CARBIDOPA\LEVODOPA [Suspect]
     Active Substance: CARBIDOPA\LEVODOPA
     Dosage: MD 13.0 ML, CD 2.2 ML/H, ED 3.5 ML,
     Route: 050

REACTIONS (37)
  - Spinal column injury [Not Recovered/Not Resolved]
  - Joint swelling [Recovering/Resolving]
  - Fall [Recovered/Resolved]
  - Pain [Not Recovered/Not Resolved]
  - Arthralgia [Not Recovered/Not Resolved]
  - Loss of personal independence in daily activities [Not Recovered/Not Resolved]
  - Death of relative [Recovered/Resolved]
  - Dysstasia [Not Recovered/Not Resolved]
  - Hypophagia [Unknown]
  - Nocturia [Not Recovered/Not Resolved]
  - Cystitis [Not Recovered/Not Resolved]
  - Mood swings [Not Recovered/Not Resolved]
  - Mobility decreased [Not Recovered/Not Resolved]
  - Psychiatric symptom [Not Recovered/Not Resolved]
  - Poor quality sleep [Recovered/Resolved]
  - Pollakiuria [Not Recovered/Not Resolved]
  - Ageusia [Unknown]
  - Cognitive disorder [Unknown]
  - Malaise [Recovered/Resolved]
  - Musculoskeletal stiffness [Unknown]
  - Fear of disease [Recovered/Resolved]
  - Device difficult to use [Unknown]
  - Abnormal dreams [Recovered/Resolved]
  - Weight decreased [Recovered/Resolved]
  - Nightmare [Recovered/Resolved]
  - Weight increased [Recovered/Resolved]
  - Dyskinesia [Not Recovered/Not Resolved]
  - Freezing phenomenon [Recovered/Resolved]
  - Initial insomnia [Recovered/Resolved]
  - Hallucination [Recovered/Resolved]
  - On and off phenomenon [Recovered/Resolved]
  - Sleep disorder [Recovering/Resolving]
  - Dizziness [Not Recovered/Not Resolved]
  - Middle insomnia [Unknown]
  - Parkinson^s disease [Not Recovered/Not Resolved]
  - Drug ineffective [Unknown]
  - Freezing phenomenon [Not Recovered/Not Resolved]

NARRATIVE: CASE EVENT DATE: 20170401
